FAERS Safety Report 20079465 (Version 3)
Quarter: 2021Q4

REPORT INFORMATION
  Report Type: Spontaneous
  Country: DE (occurrence: DE)
  Receive Date: 20211117
  Receipt Date: 20211220
  Transmission Date: 20220303
  Serious: Yes (Hospitalization, Other)
  Sender: FDA-Public Use
  Company Number: DE-NOVARTISPH-NVSC2021DE256011

PATIENT
  Age: 53 Year
  Sex: Female

DRUGS (14)
  1. TRAMADOL [Suspect]
     Active Substance: TRAMADOL
     Indication: Neuralgia
     Dosage: 50 MG
     Route: 048
     Dates: start: 20210805
  2. TRAMADOL [Suspect]
     Active Substance: TRAMADOL
     Dosage: 100 MG
     Route: 065
     Dates: start: 20210806, end: 20210812
  3. TRAMADOL [Suspect]
     Active Substance: TRAMADOL
     Dosage: 200 MG, QD
     Route: 048
     Dates: start: 20210813
  4. METAMIZOLE [Suspect]
     Active Substance: METAMIZOLE
     Indication: Product used for unknown indication
     Dosage: 1500 MG, QD
     Route: 048
     Dates: start: 20210628
  5. METAMIZOLE [Suspect]
     Active Substance: METAMIZOLE
     Dosage: 2000 MG
     Route: 065
     Dates: start: 20210629, end: 20210713
  6. METAMIZOLE [Suspect]
     Active Substance: METAMIZOLE
     Dosage: 5000 MG
     Route: 065
     Dates: start: 20210714
  7. DEXAMETHASONE [Suspect]
     Active Substance: DEXAMETHASONE
     Indication: Neuralgia
     Dosage: 2 MG, QD
     Route: 048
     Dates: start: 20210601
  8. PREGABALIN [Suspect]
     Active Substance: PREGABALIN
     Indication: Neuralgia
     Dosage: 25 MG, QD
     Route: 048
     Dates: start: 20210628, end: 20210630
  9. PREGABALIN [Suspect]
     Active Substance: PREGABALIN
     Dosage: 25-150 MG, 150 MILLIGRAM, 1/DAY
     Route: 048
     Dates: start: 20210729
  10. METOCLOPRAMIDE [Suspect]
     Active Substance: METOCLOPRAMIDE
     Indication: Neuralgia
     Dosage: 30 MG, QD
     Route: 048
     Dates: start: 20210806, end: 20210829
  11. RISPERDAL [Suspect]
     Active Substance: RISPERIDONE
     Indication: Hallucination
     Dosage: UNK
     Route: 065
  12. RISPERDAL [Suspect]
     Active Substance: RISPERIDONE
     Indication: Psychotic disorder
     Dosage: 2 MG
     Route: 065
     Dates: start: 20210601, end: 20210627
  13. RISPERDAL [Suspect]
     Active Substance: RISPERIDONE
     Indication: Amnestic disorder
     Dosage: 3 MG
     Route: 048
     Dates: start: 20210628
  14. RISPERDAL [Suspect]
     Active Substance: RISPERIDONE
     Dosage: UNK
     Route: 065

REACTIONS (4)
  - Hepatic enzyme increased [Not Recovered/Not Resolved]
  - Gamma-glutamyltransferase increased [Recovering/Resolving]
  - Aspartate aminotransferase increased [Recovering/Resolving]
  - Alanine aminotransferase increased [Recovering/Resolving]

NARRATIVE: CASE EVENT DATE: 20210628
